FAERS Safety Report 7936236-2 (Version None)
Quarter: 2011Q4

REPORT INFORMATION
  Report Type: 
  Country: None (occurrence: None)
  Receive Date: 20111123
  Receipt Date: 20111118
  Transmission Date: 20120403
  Serious: Yes (Other)
  Sender: FDA-Public Use
  Company Number: BR-PFIZER INC-2011280954

PATIENT
  Age: 59 Year
  Sex: Female
  Weight: 74 kg

DRUGS (7)
  1. ENALAPRIL [Concomitant]
     Indication: BLOOD PRESSURE INCREASED
     Dosage: UNK
  2. VARENICLINE TARTRATE [Suspect]
     Indication: SMOKING CESSATION THERAPY
     Dosage: UNK
     Route: 048
     Dates: start: 20111109, end: 20111101
  3. VARENICLINE TARTRATE [Suspect]
     Dosage: 1 MG, EVERY 12 HOURS
     Route: 048
     Dates: start: 20111101, end: 20111101
  4. TIBOLONE [Concomitant]
     Dosage: UNK
  5. ACETYLSALICYLIC ACID [Concomitant]
     Indication: HYPERTENSION
     Dosage: UNK
  6. TENSALIV [Concomitant]
     Dosage: UNK
  7. DRAMIN [Concomitant]
     Dosage: UNK

REACTIONS (11)
  - MALAISE [None]
  - THERAPEUTIC RESPONSE DECREASED [None]
  - HYPOTENSION [None]
  - IRRITABILITY [None]
  - AGITATION [None]
  - NERVOUSNESS [None]
  - VOMITING [None]
  - FEELING COLD [None]
  - NAUSEA [None]
  - DEPRESSION [None]
  - INSOMNIA [None]
